FAERS Safety Report 7671105-7 (Version None)
Quarter: 2011Q3

REPORT INFORMATION
  Report Type: 
  Country: None (occurrence: None)
  Receive Date: 20110803
  Receipt Date: 20110719
  Transmission Date: 20111222
  Serious: Yes (Death)
  Sender: FDA-Public Use
  Company Number: 1000017486

PATIENT
  Age: 16 Year
  Sex: Male
  Weight: 99.5 kg

DRUGS (2)
  1. ESCITALOPRAM [Suspect]
     Indication: DEPRESSION
     Dosage: 10 MG (10 MG, AT NIGHT)  (80 MG, ONCE)
     Dates: start: 20090811, end: 20090902
  2. ESCITALOPRAM [Suspect]
     Indication: DEPRESSION
     Dosage: 10 MG (10 MG, AT NIGHT)  (80 MG, ONCE)
     Dates: start: 20090902, end: 20090902

REACTIONS (12)
  - OFF LABEL USE [None]
  - DRUG DOSE OMISSION [None]
  - ROAD TRAFFIC ACCIDENT [None]
  - INTENTIONAL OVERDOSE [None]
  - ARTHRALGIA [None]
  - TREATMENT NONCOMPLIANCE [None]
  - LACERATION [None]
  - COMPLETED SUICIDE [None]
  - DIZZINESS POSTURAL [None]
  - EAR INFECTION [None]
  - MULTIPLE INJURIES [None]
  - INSOMNIA [None]
